FAERS Safety Report 7680791-7 (Version None)
Quarter: 2011Q3

REPORT INFORMATION
  Report Type: 
  Country: None (occurrence: None)
  Receive Date: 20110812
  Receipt Date: 20110810
  Transmission Date: 20111222
  Serious: Yes (Other)
  Sender: FDA-Public Use
  Company Number: JP-MERCK-1108USA00489

PATIENT
  Age: 61 Year
  Sex: Male

DRUGS (8)
  1. LENIMEC [Concomitant]
     Route: 065
     Dates: start: 20100213
  2. JANUVIA [Suspect]
     Indication: TYPE 2 DIABETES MELLITUS
     Route: 048
     Dates: start: 20110426, end: 20110610
  3. AMARYL [Concomitant]
     Route: 065
     Dates: start: 20081205, end: 20090409
  4. METFORMIN HCL [Concomitant]
     Route: 065
     Dates: start: 20100508
  5. BASEN OD [Concomitant]
     Route: 065
     Dates: start: 20100706
  6. MAGMITT [Concomitant]
     Route: 065
     Dates: start: 20100510
  7. AMARYL [Concomitant]
     Route: 065
     Dates: start: 20090410
  8. LENIMEC [Concomitant]
     Route: 065
     Dates: start: 20081226, end: 20100212

REACTIONS (2)
  - DIPLOPIA [None]
  - VISION BLURRED [None]
